FAERS Safety Report 7703721-8 (Version None)
Quarter: 2011Q3

REPORT INFORMATION
  Report Type: 
  Country: None (occurrence: None)
  Receive Date: 20110823
  Receipt Date: 20110814
  Transmission Date: 20111222
  Serious: Yes (Other)
  Sender: FDA-Public Use
  Company Number: GB-US-EMD SERONO, INC.-7076538

PATIENT
  Sex: Male

DRUGS (2)
  1. REBIF [Suspect]
     Indication: PRODUCT USED FOR UNKNOWN INDICATION
     Route: 058
     Dates: start: 20110726
  2. REBIF [Suspect]
     Route: 058
     Dates: start: 20110801

REACTIONS (2)
  - OPTIC NEURITIS [None]
  - SENSATION OF HEAVINESS [None]
